FAERS Safety Report 25772823 (Version 4)
Quarter: 2025Q4

REPORT INFORMATION
  Report Type: Spontaneous
  Country: US (occurrence: US)
  Receive Date: 20250908
  Receipt Date: 20251120
  Transmission Date: 20260119
  Serious: No
  Sender: SUNOVION
  Company Number: US-SMPA-2025SPA011169

PATIENT
  Age: 72 Year
  Sex: Male

DRUGS (11)
  1. ORGOVYX [Suspect]
     Active Substance: RELUGOLIX
     Indication: Prostate cancer
     Dosage: 360 MG, SINGLE
     Route: 048
     Dates: start: 20250822, end: 20250822
  2. ORGOVYX [Suspect]
     Active Substance: RELUGOLIX
     Dosage: 120 MG, QD
     Route: 048
     Dates: start: 20250823
  3. PRAVASTATIN [Concomitant]
     Active Substance: PRAVASTATIN
  4. FISH OIL [Concomitant]
     Active Substance: FISH OIL
  5. VITAMIN E [Concomitant]
     Active Substance: .ALPHA.-TOCOPHEROL
  6. VITAMINS [Concomitant]
     Active Substance: VITAMINS
  7. VITAMIN B12 [Concomitant]
     Active Substance: CYANOCOBALAMIN
  8. OLIVE OIL [Concomitant]
     Active Substance: OLIVE OIL
  9. AMBAZONE [Concomitant]
     Active Substance: AMBAZONE
  10. Prebiotics nos;Probiotics nos [Concomitant]
  11. BENADRYL [Concomitant]
     Active Substance: DIPHENHYDRAMINE HYDROCHLORIDE

REACTIONS (7)
  - Asthenia [Unknown]
  - Gynaecomastia [Unknown]
  - Hot flush [Unknown]
  - Arthralgia [Unknown]
  - Diarrhoea [Unknown]
  - Nasal septum deviation [Unknown]
  - Anxiety [Unknown]
